FAERS Safety Report 17196946 (Version 4)
Quarter: 2020Q2

REPORT INFORMATION
  Report Type: Spontaneous
  Country: US (occurrence: US)
  Receive Date: 20191224
  Receipt Date: 20200420
  Transmission Date: 20200713
  Serious: No
  Sender: FDA-Public Use
  Company Number: US-SA-2019SA349644

PATIENT
  Age: 50 Year
  Sex: Male

DRUGS (4)
  1. DUPIXENT [Suspect]
     Active Substance: DUPILUMAB
     Indication: DERMATITIS ATOPIC
     Dosage: 300 MG, QOW
     Route: 058
  2. TYLENOL [Concomitant]
     Active Substance: ACETAMINOPHEN
  3. IBUPROFEN. [Concomitant]
     Active Substance: IBUPROFEN
  4. PREVACID [Concomitant]
     Active Substance: LANSOPRAZOLE

REACTIONS (8)
  - Sleep disorder [Not Recovered/Not Resolved]
  - Rash [Recovering/Resolving]
  - Acne [Not Recovered/Not Resolved]
  - Dermatitis atopic [Recovering/Resolving]
  - Discomfort [Recovering/Resolving]
  - Aphthous ulcer [Not Recovered/Not Resolved]
  - Nasopharyngitis [Not Recovered/Not Resolved]
  - Pruritus [Recovering/Resolving]

NARRATIVE: CASE EVENT DATE: 20191220
